FAERS Safety Report 6463199-1 (Version None)
Quarter: 2009Q4

REPORT INFORMATION
  Report Type: 
  Country: None (occurrence: None)
  Receive Date: 20091123
  Receipt Date: 20091116
  Transmission Date: 20100525
  Serious: Yes (Other)
  Sender: FDA-Public Use
  Company Number: 2009SP036802

PATIENT
  Age: 51 Year
  Sex: Female

DRUGS (1)
  1. REMERON [Suspect]
     Indication: ANTIDEPRESSANT THERAPY
     Dosage: 15 MG; QD;, 30 MG; QD;
     Dates: start: 20090928

REACTIONS (2)
  - DELUSION [None]
  - PSYCHOTIC DISORDER [None]
